FAERS Safety Report 13395680 (Version 1)
Quarter: 2017Q2

REPORT INFORMATION
  Report Type: Spontaneous
  Country: US (occurrence: US)
  Receive Date: 20170401
  Receipt Date: 20170401
  Transmission Date: 20170830
  Serious: Yes (Hospitalization, Disabling)
  Sender: FDA-Public Use
  Company Number: None

PATIENT
  Age: 60 Year
  Weight: 63 kg

DRUGS (2)
  1. LEVAQUIN [Suspect]
     Active Substance: LEVOFLOXACIN
     Indication: URINARY TRACT INFECTION
     Route: 041
     Dates: start: 20150413, end: 20150415
  2. LEVAQUIN [Suspect]
     Active Substance: LEVOFLOXACIN
     Indication: COLITIS
     Route: 041
     Dates: start: 20150413, end: 20150415

REACTIONS (7)
  - Neuropathy peripheral [None]
  - Blepharospasm [None]
  - Muscle spasms [None]
  - Pain in extremity [None]
  - Neck pain [None]
  - Muscle twitching [None]
  - Oral pain [None]

NARRATIVE: CASE EVENT DATE: 20150413
